FAERS Safety Report 13237256 (Version 2)
Quarter: 2017Q1

REPORT INFORMATION
  Report Type: Spontaneous
  Country: US (occurrence: US)
  Receive Date: 20170215
  Receipt Date: 20170228
  Transmission Date: 20170428
  Serious: Yes (Other)
  Sender: FDA-Public Use
  Company Number: US-THE RITEDOSE CORPORATION-2017RIT000041

PATIENT
  Age: 22 Year
  Sex: Female
  Weight: 38.55 kg

DRUGS (2)
  1. ALBUTEROL SULFATE INHALATION SOLUTION [Suspect]
     Active Substance: ALBUTEROL SULFATE
     Indication: TRACHEOSTOMY
     Dosage: 1 DF, BID
     Route: 055
     Dates: start: 2015, end: 20170203
  2. ALBUTEROL SULFATE INHALATION SOLUTION [Suspect]
     Active Substance: ALBUTEROL SULFATE
     Indication: RESPIRATORY DISORDER
     Dosage: UNK
     Dates: start: 201702

REACTIONS (5)
  - Haemorrhage [Recovered/Resolved]
  - Inflammation [Unknown]
  - Product contamination chemical [Unknown]
  - Sputum discoloured [Not Recovered/Not Resolved]
  - Increased viscosity of bronchial secretion [Not Recovered/Not Resolved]

NARRATIVE: CASE EVENT DATE: 201702
